FAERS Safety Report 5391672-6 (Version None)
Quarter: 2007Q3

REPORT INFORMATION
  Report Type: 
  Country: None (occurrence: None)
  Receive Date: 20070717
  Receipt Date: 20070702
  Transmission Date: 20080115
  Serious: Yes (Death, Hospitalization)
  Sender: FDA-Public Use
  Company Number: 2007P1000106

PATIENT
  Age: 59 Year
  Sex: Male

DRUGS (3)
  1. BUSULFAN (BUSULFAN) [Suspect]
     Indication: STEM CELL TRANSPLANT
     Dosage: 46 MG;QID;IV
     Route: 042
  2. CYCLOPHOSPHAMIDE [Concomitant]
  3. HEPARIN [Concomitant]

REACTIONS (18)
  - ANOREXIA [None]
  - CAPILLARY LEAK SYNDROME [None]
  - CARDIAC FAILURE [None]
  - DIARRHOEA [None]
  - DISSEMINATED INTRAVASCULAR COAGULATION [None]
  - GASTROENTERITIS STAPHYLOCOCCAL [None]
  - HAEMOLYSIS [None]
  - HAEMORRHOIDS [None]
  - LIVER DISORDER [None]
  - MULTI-ORGAN FAILURE [None]
  - NAUSEA [None]
  - PULMONARY EMBOLISM [None]
  - PULMONARY OEDEMA [None]
  - RENAL DISORDER [None]
  - RENAL FAILURE [None]
  - STAPHYLOCOCCAL SEPSIS [None]
  - STOMATITIS [None]
  - WHITE BLOOD CELL COUNT INCREASED [None]
